FAERS Safety Report 10656829 (Version 10)
Quarter: 2017Q1

REPORT INFORMATION
  Report Type: Spontaneous
  Country: CA (occurrence: CA)
  Receive Date: 20141217
  Receipt Date: 20170301
  Transmission Date: 20170428
  Serious: Yes (Other)
  Sender: FDA-Public Use
  Company Number: CA-ROCHE-1126813

PATIENT
  Age: 58 Year
  Sex: Female

DRUGS (7)
  1. XOLAIR [Suspect]
     Active Substance: OMALIZUMAB
     Dosage: UNK
     Route: 058
     Dates: start: 20160614
  2. XOLAIR [Suspect]
     Active Substance: OMALIZUMAB
     Indication: ASTHMA
     Dosage: 375 MG, BIW
     Route: 058
     Dates: start: 20110216
  3. XOLAIR [Suspect]
     Active Substance: OMALIZUMAB
     Dosage: UNK
     Route: 058
     Dates: start: 20160311
  4. XOLAIR [Suspect]
     Active Substance: OMALIZUMAB
     Dosage: UNK
     Route: 058
     Dates: start: 20160505
  5. XOLAIR [Suspect]
     Active Substance: OMALIZUMAB
     Dosage: UNK
     Route: 058
     Dates: start: 20170210
  6. XOLAIR [Suspect]
     Active Substance: OMALIZUMAB
     Dosage: UNK
     Route: 058
     Dates: start: 20141209
  7. XOLAIR [Suspect]
     Active Substance: OMALIZUMAB
     Dosage: UNK
     Route: 058
     Dates: start: 20161021

REACTIONS (15)
  - Oropharyngeal pain [Unknown]
  - Hypersensitivity [Unknown]
  - Respiratory tract congestion [Unknown]
  - Pharyngitis [Unknown]
  - Viral infection [Unknown]
  - Dysphonia [Unknown]
  - Rhinitis [Recovering/Resolving]
  - Nasopharyngitis [Recovering/Resolving]
  - Benign breast neoplasm [Unknown]
  - Respiratory disorder [Recovering/Resolving]
  - Bronchitis [Unknown]
  - Herpes zoster [Unknown]
  - Wound complication [Unknown]
  - Respiratory rate increased [Unknown]
  - Urinary tract infection [Unknown]

NARRATIVE: CASE EVENT DATE: 2012
